FAERS Safety Report 16696132 (Version 1)
Quarter: 2019Q3

REPORT INFORMATION
  Report Type: Spontaneous
  Country: US (occurrence: US)
  Receive Date: 20190813
  Receipt Date: 20190813
  Transmission Date: 20191004
  Serious: Yes (Other)
  Sender: FDA-Public Use
  Company Number: US-AUROBINDO-AUR-APU-2018-058873

PATIENT
  Sex: Female

DRUGS (1)
  1. LEVOFLOXACIN TABLETS 750MG [Suspect]
     Active Substance: LEVOFLOXACIN
     Indication: SKIN INFECTION
     Dosage: 1 DOSAGE FORM, DAILY
     Route: 065
     Dates: start: 20181004, end: 20181005

REACTIONS (3)
  - Neuropathy peripheral [Unknown]
  - Dysphonia [Unknown]
  - Throat tightness [Unknown]

NARRATIVE: CASE EVENT DATE: 20181005
